FAERS Safety Report 8166421-9 (Version None)
Quarter: 2012Q1

REPORT INFORMATION
  Report Type: 
  Country: None (occurrence: None)
  Receive Date: 20120227
  Receipt Date: 20110810
  Transmission Date: 20120608
  Serious: No
  Sender: FDA-Public Use
  Company Number: US-MYLANLABS-2011S1015560

PATIENT
  Age: 36 Year
  Sex: Female
  Weight: 49 kg

DRUGS (3)
  1. AMNESTEEM [Suspect]
     Indication: ACNE
     Route: 048
     Dates: start: 20110405, end: 20110609
  2. AMNESTEEM [Suspect]
     Indication: ACNE CYSTIC
     Route: 048
     Dates: start: 20110405, end: 20110609
  3. ZANTAC [Concomitant]
     Dates: start: 20070206

REACTIONS (1)
  - ACNE [None]
